FAERS Safety Report 7716444-6 (Version None)
Quarter: 2011Q3

REPORT INFORMATION
  Report Type: 
  Country: None (occurrence: None)
  Receive Date: 20110829
  Receipt Date: 20110824
  Transmission Date: 20111222
  Serious: Yes (Disabling, Other)
  Sender: FDA-Public Use
  Company Number: US-MERCK-1103USA01739

PATIENT
  Age: 68 Year
  Sex: Female
  Weight: 47 kg

DRUGS (5)
  1. ACTONEL [Suspect]
     Indication: OSTEOPENIA
     Route: 065
     Dates: start: 20040423, end: 20080801
  2. FOSAMAX [Suspect]
     Indication: OSTEOPOROSIS
     Route: 048
     Dates: start: 19940101, end: 20050701
  3. ACTONEL [Suspect]
     Indication: OSTEOPOROSIS
     Route: 065
     Dates: start: 20040423, end: 20080801
  4. CLONIDINE [Concomitant]
     Indication: HYPERTENSION
     Route: 048
     Dates: start: 19910101
  5. FOSAMAX [Suspect]
     Indication: OSTEOPENIA
     Route: 048
     Dates: start: 19940101, end: 20050701

REACTIONS (21)
  - ARTHROPATHY [None]
  - DEPRESSION [None]
  - OSTEONECROSIS OF JAW [None]
  - HYPERTENSION [None]
  - ADVERSE EVENT [None]
  - TENDON DISORDER [None]
  - ADVERSE DRUG REACTION [None]
  - ANXIETY [None]
  - RESTLESS LEGS SYNDROME [None]
  - IMPAIRED HEALING [None]
  - MYOCARDIAL INFARCTION [None]
  - BACK PAIN [None]
  - SCOLIOSIS [None]
  - PARATHYROID DISORDER [None]
  - DYSPNOEA [None]
  - CHRONIC OBSTRUCTIVE PULMONARY DISEASE [None]
  - DENTAL CARIES [None]
  - FATIGUE [None]
  - JAW DISORDER [None]
  - ATYPICAL MYCOBACTERIAL LYMPHADENITIS [None]
  - NASOPHARYNGITIS [None]
